FAERS Safety Report 24287281 (Version 3)
Quarter: 2024Q4

REPORT INFORMATION
  Report Type: Spontaneous
  Country: CL (occurrence: CL)
  Receive Date: 20240905
  Receipt Date: 20241018
  Transmission Date: 20250115
  Serious: No
  Sender: PFIZER
  Company Number: CL-PFIZER INC-PV202400114849

PATIENT
  Age: 32 Year
  Sex: Male

DRUGS (1)
  1. GENOTROPIN [Suspect]
     Active Substance: SOMATROPIN
     Indication: Androgen deficiency

REACTIONS (4)
  - Off label use [Unknown]
  - Device leakage [Unknown]
  - Drug dose omission by device [Unknown]
  - Device information output issue [Unknown]
